FAERS Safety Report 5154788-5 (Version None)
Quarter: 2006Q4

REPORT INFORMATION
  Report Type: 
  Country: None (occurrence: None)
  Receive Date: 20061116
  Receipt Date: 20061116
  Transmission Date: 20070319
  Serious: No
  Sender: FDA-Public Use
  Company Number: None

PATIENT
  Age: 69 Year
  Sex: Male
  Weight: 72.5755 kg

DRUGS (1)
  1. EQUATE EXTRA STR. PAIN RELIEVER   500 MG.    EQUATE/WAL-MART   PERRIGO [Suspect]
     Indication: ARTHRALGIA
     Dosage: 2 PILLS  TWICE DAILY
     Dates: start: 20060908, end: 20061109

REACTIONS (3)
  - HAEMOPTYSIS [None]
  - PHARMACEUTICAL PRODUCT COMPLAINT [None]
  - POOR QUALITY DRUG ADMINISTERED [None]
